FAERS Safety Report 4290367-X (Version None)
Quarter: 2004Q1

REPORT INFORMATION
  Report Type: 
  Country: None (occurrence: None)
  Receive Date: 20040209
  Receipt Date: 20040122
  Transmission Date: 20041129
  Serious: Yes (Hospitalization)
  Sender: FDA-Public Use
  Company Number: 7328

PATIENT
  Age: 34 Year
  Sex: Female

DRUGS (1)
  1. METHOTREXATE [Suspect]
     Indication: ABORTION INDUCED
     Dosage: 50 MG ONCE INJ

REACTIONS (5)
  - BLOOD HUMAN CHORIONIC GONADOTROPIN DECREASED [None]
  - COMPLICATIONS OF MATERNAL EXPOSURE TO THERAPEUTIC DRUGS [None]
  - HAEMOGLOBIN DECREASED [None]
  - MATERNAL DRUGS AFFECTING FOETUS [None]
  - VAGINAL HAEMORRHAGE [None]
